FAERS Safety Report 4412439-9 (Version None)
Quarter: 2004Q2

REPORT INFORMATION
  Report Type: 
  Country: None (occurrence: None)
  Receive Date: 20040630
  Receipt Date: 20040329
  Transmission Date: 20050107
  Serious: No
  Sender: FDA-Public Use
  Company Number: 04P-163-0255228-00

PATIENT
  Age: 77 Year
  Sex: Female

DRUGS (1)
  1. HUMIRA [Suspect]
     Dosage: 40 MG, SUBCUTANEOUS
     Route: 058
     Dates: start: 20030101, end: 20030101

REACTIONS (1)
  - LUNG INFECTION [None]
